FAERS Safety Report 19384501 (Version 2)
Quarter: 2021Q2

REPORT INFORMATION
  Report Type: Report from Study
  Country: None (occurrence: NL)
  Receive Date: 20210608
  Receipt Date: 20210611
  Transmission Date: 20210717
  Serious: Yes (Death, Other)
  Sender: FDA-Public Use
  Company Number: NL-ABBVIE-18K-114-2240725-00

PATIENT
  Age: 78 Year
  Sex: Male

DRUGS (7)
  1. DUODOPA [Suspect]
     Active Substance: CARBIDOPA\LEVODOPA
     Route: 050
  2. DUODOPA [Suspect]
     Active Substance: CARBIDOPA\LEVODOPA
     Dosage: MD: 9.2 ML, CD: 4.3 ML/HR, ED: 2.3 ML?REMAINS AT 16 HOURS
     Route: 050
     Dates: start: 201801
  3. MOVICOLON [Concomitant]
     Active Substance: POLYETHYLENE GLYCOL 3350\POTASSIUM CHLORIDE\SODIUM BICARBONATE\SODIUM CHLORIDE
     Indication: BOWEL MOVEMENT IRREGULARITY
  4. DUODOPA [Suspect]
     Active Substance: CARBIDOPA\LEVODOPA
     Dosage: MD: 8.7 ML, CD: 4.0 ML/HR, ED: 2.3 ML
     Route: 050
     Dates: start: 201801
  5. DUODOPA [Suspect]
     Active Substance: CARBIDOPA\LEVODOPA
     Indication: PARKINSON^S DISEASE
     Dosage: MD 10.5, CD 4.7, ED 1.0
     Route: 050
     Dates: start: 201801
  6. RIVASTIGMIN PATCHES [Concomitant]
     Indication: PRODUCT USED FOR UNKNOWN INDICATION
  7. DUODOPA [Suspect]
     Active Substance: CARBIDOPA\LEVODOPA
     Dosage: MD: 8.7 ML, CD: 3.0 ML/HR, ED: 2.3 ML
     Route: 050

REACTIONS (46)
  - Fatigue [Not Recovered/Not Resolved]
  - Nausea [Not Recovered/Not Resolved]
  - Anxiety [Not Recovered/Not Resolved]
  - Bradykinesia [Not Recovered/Not Resolved]
  - Dyskinesia [Recovered/Resolved]
  - Cognitive disorder [Not Recovered/Not Resolved]
  - Stoma site discharge [Recovered/Resolved]
  - Hallucination [Not Recovered/Not Resolved]
  - Personality disorder [Not Recovered/Not Resolved]
  - Faecal volume decreased [Not Recovered/Not Resolved]
  - Impulse-control disorder [Not Recovered/Not Resolved]
  - Dystonic tremor [Not Recovered/Not Resolved]
  - Freezing phenomenon [Not Recovered/Not Resolved]
  - Mobility decreased [Not Recovered/Not Resolved]
  - Sexually active [Not Recovered/Not Resolved]
  - Restlessness [Recovered/Resolved]
  - Dementia [Not Recovered/Not Resolved]
  - Hypersomnia [Not Recovered/Not Resolved]
  - Loss of personal independence in daily activities [Not Recovered/Not Resolved]
  - Living in residential institution [Unknown]
  - Hallucination, visual [Recovered/Resolved]
  - Disorientation [Not Recovered/Not Resolved]
  - Stoma site discharge [Recovered/Resolved]
  - Dysphagia [Not Recovered/Not Resolved]
  - Dyskinesia [Not Recovered/Not Resolved]
  - Faeces soft [Not Recovered/Not Resolved]
  - Communication disorder [Not Recovered/Not Resolved]
  - Fluid intake reduced [Not Recovered/Not Resolved]
  - Muscle rigidity [Not Recovered/Not Resolved]
  - Obsessive-compulsive disorder [Not Recovered/Not Resolved]
  - Fall [Not Recovered/Not Resolved]
  - Hypersomnia [Unknown]
  - Aggression [Not Recovered/Not Resolved]
  - Stoma site erythema [Recovered/Resolved]
  - Underdose [Not Recovered/Not Resolved]
  - Parkinson^s disease [Fatal]
  - Agitation [Recovered/Resolved]
  - General physical health deterioration [Not Recovered/Not Resolved]
  - Memory impairment [Not Recovered/Not Resolved]
  - Restlessness [Not Recovered/Not Resolved]
  - Impaired quality of life [Unknown]
  - On and off phenomenon [Not Recovered/Not Resolved]
  - Abnormal dreams [Recovered/Resolved]
  - Reduced facial expression [Not Recovered/Not Resolved]
  - Obsessive-compulsive disorder [Unknown]
  - Decreased appetite [Not Recovered/Not Resolved]

NARRATIVE: CASE EVENT DATE: 201801
